FAERS Safety Report 10746392 (Version 1)
Quarter: 2015Q1

REPORT INFORMATION
  Report Type: Spontaneous
  Country: US (occurrence: US)
  Receive Date: 20150128
  Receipt Date: 20150128
  Transmission Date: 20150721
  Serious: No
  Sender: FDA-Public Use
  Company Number: US-GLAXOSMITHKLINE-US2014GSK048598

PATIENT
  Sex: Female

DRUGS (2)
  1. TYKERB [Suspect]
     Active Substance: LAPATINIB DITOSYLATE
     Indication: BREAST CANCER FEMALE
     Dosage: 1000 MG, QD
     Dates: start: 20141030
  2. TYKERB [Suspect]
     Active Substance: LAPATINIB DITOSYLATE
     Indication: CHRONIC KIDNEY DISEASE

REACTIONS (2)
  - Pain in extremity [Unknown]
  - Peripheral coldness [Unknown]
